FAERS Safety Report 4644575-6 (Version None)
Quarter: 2005Q2

REPORT INFORMATION
  Report Type: 
  Country: None (occurrence: None)
  Receive Date: 20050426
  Receipt Date: 20050413
  Transmission Date: 20051028
  Serious: Yes (Hospitalization)
  Sender: FDA-Public Use
  Company Number: 200513086US

PATIENT
  Sex: Female
  Weight: 90.45 kg

DRUGS (8)
  1. TAXOTERE [Suspect]
     Indication: BREAST CANCER
     Route: 042
     Dates: start: 20050308, end: 20050329
  2. XELODA [Suspect]
     Indication: BREAST CANCER
     Route: 048
     Dates: start: 20050308, end: 20050401
  3. MICARDIS [Concomitant]
  4. AMARYL [Concomitant]
  5. AVANDIA [Concomitant]
     Dosage: DOSE: 4/500
  6. VICODIN [Concomitant]
  7. SYNTHROID [Concomitant]
  8. IBUPROFEN [Concomitant]

REACTIONS (1)
  - MYOSITIS [None]
